FAERS Safety Report 4706368-0 (Version None)
Quarter: 2005Q3

REPORT INFORMATION
  Report Type: 
  Country: None (occurrence: None)
  Receive Date: 20050705
  Receipt Date: 20050510
  Transmission Date: 20060218
  Serious: Yes (Hospitalization)
  Sender: FDA-Public Use
  Company Number: DE-BRISTOL-MYERS SQUIBB COMPANY-12964482

PATIENT
  Age: 64 Year
  Sex: Male
  Weight: 76 kg

DRUGS (6)
  1. REYATAZ [Suspect]
     Indication: HIV INFECTION
     Dates: start: 20050111, end: 20050510
  2. RITONAVIR [Concomitant]
     Dates: start: 20050111
  3. TENOFOVIR [Concomitant]
     Dates: start: 20040428
  4. EMTRICITABINE [Concomitant]
     Dates: start: 20050315
  5. TRIMETHOPRIM-SULFAMETHOXAZOLE [Concomitant]
     Indication: PROPHYLAXIS
  6. DIFLUCAN [Concomitant]
     Indication: PROPHYLAXIS

REACTIONS (3)
  - ANOREXIA [None]
  - JAUNDICE [None]
  - OCULAR ICTERUS [None]
